FAERS Safety Report 16322688 (Version 1)
Quarter: 2019Q2

REPORT INFORMATION
  Report Type: Spontaneous
  Country: MT (occurrence: MT)
  Receive Date: 20190516
  Receipt Date: 20190516
  Transmission Date: 20190711
  Serious: Yes (Hospitalization, Other)
  Sender: FDA-Public Use
  Company Number: PHHY2019MT106155

PATIENT
  Age: 80 Year
  Sex: Female

DRUGS (6)
  1. DIGOXIN. [Interacting]
     Active Substance: DIGOXIN
     Indication: HEART RATE
     Dosage: 0.125 MG, QD
     Route: 065
  2. WARFARIN [Suspect]
     Active Substance: WARFARIN
     Indication: PRODUCT USED FOR UNKNOWN INDICATION
     Route: 065
  3. OMEPRAZOLE. [Interacting]
     Active Substance: OMEPRAZOLE
     Dosage: 20 MG, BID
     Route: 065
  4. CLARITHROMYCIN. [Suspect]
     Active Substance: CLARITHROMYCIN
     Indication: HELICOBACTER TEST POSITIVE
     Dosage: 500 MG, BID
     Route: 065
  5. OMEPRAZOLE. [Suspect]
     Active Substance: OMEPRAZOLE
     Indication: PRODUCT USED FOR UNKNOWN INDICATION
     Dosage: 20 MG, QD
     Route: 065
  6. AMOXICILLIN. [Suspect]
     Active Substance: AMOXICILLIN
     Indication: HELICOBACTER TEST POSITIVE
     Dosage: 1 G, BID
     Route: 065

REACTIONS (17)
  - Bradycardia [Unknown]
  - Hyperhidrosis [Unknown]
  - Ventricular tachycardia [Unknown]
  - Bradyarrhythmia [Unknown]
  - Epigastric discomfort [Unknown]
  - Vision blurred [Unknown]
  - Supraventricular tachycardia [Unknown]
  - Nausea [Unknown]
  - Dizziness [Unknown]
  - Abdominal tenderness [Unknown]
  - Cardioactive drug level increased [Unknown]
  - Electrocardiogram ST segment depression [Unknown]
  - Toxicity to various agents [Unknown]
  - Drug interaction [Unknown]
  - Blood creatinine increased [Recovering/Resolving]
  - Acute kidney injury [Unknown]
  - Hyperkalaemia [Recovered/Resolved]
